FAERS Safety Report 4579771-X (Version None)
Quarter: 2005Q1

REPORT INFORMATION
  Report Type: 
  Country: None (occurrence: None)
  Receive Date: 20050210
  Receipt Date: 20050201
  Transmission Date: 20050727
  Serious: Yes (Death, Other)
  Sender: FDA-Public Use
  Company Number: 2005-02-0104

PATIENT
  Age: 45 Year
  Sex: Male

DRUGS (4)
  1. BETAMETHASONE [Suspect]
     Indication: ERYTHEMA
  2. PREDNISOLONE [Suspect]
     Indication: ERYTHEMA
     Dosage: ORAL
     Route: 048
  3. DAPSONE [Suspect]
     Indication: SKIN LESION
  4. CLOFAZIMINE [Concomitant]

REACTIONS (12)
  - ARTHRALGIA [None]
  - CONJUNCTIVAL DISORDER [None]
  - FAECAL OCCULT BLOOD [None]
  - HAND DEFORMITY [None]
  - IRON BINDING CAPACITY TOTAL DECREASED [None]
  - LEPROSY [None]
  - OEDEMA PERIPHERAL [None]
  - PLATELET COUNT DECREASED [None]
  - PROTEIN TOTAL DECREASED [None]
  - PYREXIA [None]
  - VOMITING [None]
  - XEROSIS [None]
